FAERS Safety Report 5692495-0 (Version None)
Quarter: 2008Q2

REPORT INFORMATION
  Report Type: 
  Country: None (occurrence: None)
  Receive Date: 20080328
  Receipt Date: 20080103
  Transmission Date: 20081010
  Serious: No
  Sender: FDA-Public Use
  Company Number: US-WYE-H01225207

PATIENT
  Age: 71 Year
  Sex: Female
  Weight: 78.09 kg

DRUGS (2)
  1. TORISEL [Suspect]
     Indication: METASTATIC RENAL CELL CARCINOMA
     Dosage: 25 MG 1X PER 2 WK, INTRAVENOUS; 25 MG 1X PER 1 WK, INTRAVENOUS
     Route: 042
     Dates: start: 20071011, end: 20071101
  2. TORISEL [Suspect]
     Indication: METASTATIC RENAL CELL CARCINOMA
     Dosage: 25 MG 1X PER 2 WK, INTRAVENOUS; 25 MG 1X PER 1 WK, INTRAVENOUS
     Route: 042
     Dates: start: 20071101

REACTIONS (1)
  - RASH PRURITIC [None]
